FAERS Safety Report 6380270-3 (Version None)
Quarter: 2009Q3

REPORT INFORMATION
  Report Type: 
  Country: None (occurrence: None)
  Receive Date: 20090916
  Receipt Date: 20090909
  Transmission Date: 20100115
  Serious: Yes (Hospitalization, Other)
  Sender: FDA-Public Use
  Company Number: THYM-1001066

PATIENT
  Age: 19 Year
  Sex: Male
  Weight: 66 kg

DRUGS (8)
  1. THYMOGLOBULIN [Suspect]
     Indication: APLASTIC ANAEMIA
     Dosage: 3.5 MG/KG, QD, INTRAVENOUS
     Route: 042
     Dates: start: 20090520, end: 20090524
  2. BENADRYL [Concomitant]
  3. METACIN (INDOMETACIN) [Concomitant]
  4. CYCLOSPORINE [Concomitant]
  5. MEROPENEM [Concomitant]
  6. METRONIDAZOLE [Concomitant]
  7. LEVOFLOXACIN [Concomitant]
  8. CEFIXIME CHEWABLE [Concomitant]

REACTIONS (10)
  - ABDOMINAL PAIN [None]
  - APPENDICITIS [None]
  - FEBRILE NEUTROPENIA [None]
  - GASTROENTERITIS [None]
  - HYPOTENSION [None]
  - INFUSION RELATED REACTION [None]
  - SEPSIS [None]
  - SERUM SICKNESS [None]
  - THERAPEUTIC AGENT TOXICITY [None]
  - VOMITING [None]
